FAERS Safety Report 6339517-1 (Version None)
Quarter: 2009Q3

REPORT INFORMATION
  Report Type: 
  Country: None (occurrence: None)
  Receive Date: 20090827
  Receipt Date: 20090707
  Transmission Date: 20100115
  Serious: No
  Sender: FDA-Public Use
  Company Number: 001228

PATIENT
  Age: 49 Year
  Sex: Male

DRUGS (3)
  1. LACOSAMIDE [Suspect]
     Indication: EPILEPSY
     Dosage: (50 MG BID ORAL), (100 MG BID ORAL)
     Route: 048
  2. PHENOBARBITAL [Concomitant]
  3. KEPPRA [Concomitant]

REACTIONS (1)
  - RASH PRURITIC [None]
